FAERS Safety Report 24984828 (Version 1)
Quarter: 2025Q1

REPORT INFORMATION
  Report Type: Spontaneous
  Country: JP (occurrence: JP)
  Receive Date: 20250219
  Receipt Date: 20250219
  Transmission Date: 20250409
  Serious: Yes (Other)
  Sender: AMGEN
  Company Number: JP-AMGEN-JPNSP2025030004

PATIENT
  Age: 2 Year
  Sex: Female

DRUGS (1)
  1. BLINATUMOMAB [Suspect]
     Active Substance: BLINATUMOMAB
     Indication: Acute lymphocytic leukaemia
     Route: 065

REACTIONS (6)
  - Acute lymphocytic leukaemia recurrent [Recovered/Resolved]
  - Retinitis pigmentosa [Not Recovered/Not Resolved]
  - Serous retinal detachment [Recovered/Resolved]
  - Leukaemic infiltration extramedullary [Unknown]
  - Mydriasis [Unknown]
  - Pupillary reflex impaired [Unknown]
